FAERS Safety Report 14160086 (Version 3)
Quarter: 2017Q4

REPORT INFORMATION
  Report Type: Spontaneous
  Country: US (occurrence: US)
  Receive Date: 20171103
  Receipt Date: 20171227
  Transmission Date: 20180321
  Serious: Yes (Other)
  Sender: FDA-Public Use
  Company Number: US-IMPAX LABORATORIES, INC-2017-IPXL-03007

PATIENT
  Sex: Male

DRUGS (2)
  1. RYTARY [Suspect]
     Active Substance: CARBIDOPA\LEVODOPA
     Dosage: 48.75/195 MG, THREE CAPSULES, FOUR TIMES DAILY
     Route: 048
     Dates: start: 2017
  2. RYTARY [Suspect]
     Active Substance: CARBIDOPA\LEVODOPA
     Indication: PARKINSON^S DISEASE
     Dosage: 48.75/195 MG, THREE CAPSULES, THREE TIMES DAILY
     Route: 048
     Dates: start: 2016, end: 2017

REACTIONS (4)
  - Therapeutic response shortened [Unknown]
  - Memory impairment [Unknown]
  - Tremor [Not Recovered/Not Resolved]
  - Deep brain stimulation [Unknown]

NARRATIVE: CASE EVENT DATE: 2017
